FAERS Safety Report 7723641-2 (Version None)
Quarter: 2011Q3

REPORT INFORMATION
  Report Type: 
  Country: None (occurrence: None)
  Receive Date: 20110901
  Receipt Date: 20110823
  Transmission Date: 20111222
  Serious: Yes (Hospitalization)
  Sender: FDA-Public Use
  Company Number: DE-SANOFI-AVENTIS-2011SA051866

PATIENT
  Age: 68 Year
  Sex: Male
  Weight: 69 kg

DRUGS (10)
  1. ELOXATIN [Suspect]
     Route: 042
     Dates: start: 20110721, end: 20110721
  2. XELODA [Suspect]
     Route: 048
     Dates: end: 20110721
  3. THERAPEUTIC RADIOPHARMACEUTICALS [Suspect]
     Indication: RECTAL CANCER
     Dosage: D1-33 1.8 GY WITHOUT WEEKENDS+OPTIONAL BOOST, 45 GY TOTAL
     Dates: start: 20110228, end: 20110406
  4. SIMVASTATIN [Concomitant]
     Route: 048
     Dates: start: 20110728
  5. XELODA [Suspect]
     Indication: RECTAL CANCER
     Route: 048
     Dates: start: 20110228
  6. BEZAFIBRATE [Concomitant]
     Route: 048
     Dates: start: 20000101, end: 20110725
  7. ELOXATIN [Suspect]
     Indication: RECTAL CANCER
     Route: 042
     Dates: start: 20110228, end: 20110228
  8. URAPIDIL [Concomitant]
     Indication: HYPERTENSION
     Route: 048
     Dates: start: 20000101, end: 20110725
  9. CARVEDILOL [Concomitant]
     Indication: HYPERTENSION
     Route: 048
     Dates: start: 20000101, end: 20110725
  10. ALL OTHER NON-THERAPEUTIC PRODUCTS [Suspect]
     Indication: RECTAL CANCER
     Dates: start: 20110519, end: 20110519

REACTIONS (4)
  - DEHYDRATION [None]
  - RENAL FAILURE [None]
  - ARRHYTHMIA [None]
  - DIARRHOEA [None]
